FAERS Safety Report 10660345 (Version 1)
Quarter: 2014Q4

REPORT INFORMATION
  Report Type: Spontaneous
  Country: US (occurrence: US)
  Receive Date: 20141217
  Receipt Date: 20141217
  Transmission Date: 20150529
  Serious: Yes (Other)
  Sender: FDA-Public Use
  Company Number: US-GE HEALTHCARE MEDICAL DIAGNOSTICS-OSCN-PR-1412S-0180

PATIENT
  Age: 42 Year
  Sex: Female

DRUGS (4)
  1. OMNISCAN [Suspect]
     Active Substance: GADODIAMIDE
     Indication: DEMYELINATION
     Route: 042
     Dates: start: 20141210, end: 20141210
  2. CLOZAPINE. [Concomitant]
     Active Substance: CLOZAPINE
  3. OMNISCAN [Suspect]
     Active Substance: GADODIAMIDE
     Indication: DIAGNOSTIC PROCEDURE
  4. AZOR [Concomitant]
     Active Substance: AMLODIPINE BESYLATE\OLMESARTAN MEDOXOMIL

REACTIONS (4)
  - Anxiety [Recovered/Resolved]
  - Erythema [Recovered/Resolved]
  - Dysphagia [Recovered/Resolved]
  - Dyspnoea [Recovered/Resolved]

NARRATIVE: CASE EVENT DATE: 20141210
